FAERS Safety Report 6683032-2 (Version None)
Quarter: 2010Q2

REPORT INFORMATION
  Report Type: 
  Country: None (occurrence: None)
  Receive Date: 20100415
  Receipt Date: 20100405
  Transmission Date: 20101027
  Serious: Yes (Hospitalization, Other)
  Sender: FDA-Public Use
  Company Number: US-ABBOTT-10P-163-0636088-00

PATIENT
  Sex: Female

DRUGS (3)
  1. HUMIRA [Suspect]
     Indication: PSORIASIS
     Dosage: 1ST LOADING DOSE
     Route: 058
     Dates: start: 20091006, end: 20091006
  2. HUMIRA [Suspect]
     Dosage: RECEIVED ONE DOSE
     Route: 058
     Dates: start: 20091001, end: 20091021
  3. YAZ [Suspect]
     Indication: CONTRACEPTION
     Route: 048
     Dates: start: 20070101, end: 20091021

REACTIONS (1)
  - PULMONARY EMBOLISM [None]
